FAERS Safety Report 4926704-X (Version None)
Quarter: 2006Q1

REPORT INFORMATION
  Report Type: 
  Country: None (occurrence: None)
  Receive Date: 20060228
  Receipt Date: 20050531
  Transmission Date: 20060701
  Serious: No
  Sender: FDA-Public Use
  Company Number: US-GLAXOSMITHKLINE-A0560576A

PATIENT
  Age: 18 Year
  Sex: Female

DRUGS (6)
  1. LAMICTAL [Suspect]
     Indication: BIPOLAR DISORDER
     Dosage: 50MG IN THE MORNING
     Route: 048
  2. LAMICTAL [Suspect]
     Dosage: 75MG AT NIGHT
     Route: 048
     Dates: end: 20050530
  3. DEXEDRINE [Concomitant]
  4. TRAZODONE [Concomitant]
  5. STRATTERA [Concomitant]
  6. XANAX [Concomitant]

REACTIONS (1)
  - RASH [None]
